FAERS Safety Report 16567775 (Version 1)
Quarter: 2019Q3

REPORT INFORMATION
  Report Type: Spontaneous
  Country: CN (occurrence: CN)
  Receive Date: 20190712
  Receipt Date: 20190712
  Transmission Date: 20191004
  Serious: Yes (Other)
  Sender: FDA-Public Use
  Company Number: CN-009507513-1907CHN002896

PATIENT
  Age: 32 Year
  Sex: Male
  Weight: 53.8 kg

DRUGS (2)
  1. SODIUM CHLORIDE. [Concomitant]
     Active Substance: SODIUM CHLORIDE
     Indication: MEDICATION DILUTION
     Dosage: 100 ML (ALSO REPORTED AS 250 ML), QD
     Dates: start: 20190425, end: 20190425
  2. CANCIDAS [Suspect]
     Active Substance: CASPOFUNGIN ACETATE
     Indication: FUNGAL SEPSIS
     Dosage: 70 MG, QD
     Route: 042
     Dates: start: 20190425, end: 20190425

REACTIONS (2)
  - Hyperpyrexia [Recovering/Resolving]
  - Dysphoria [Recovering/Resolving]

NARRATIVE: CASE EVENT DATE: 20190425
